FAERS Safety Report 8253090-2 (Version None)
Quarter: 2012Q2

REPORT INFORMATION
  Report Type: 
  Country: None (occurrence: None)
  Receive Date: 20120402
  Receipt Date: 20120302
  Transmission Date: 20120825
  Serious: No
  Sender: FDA-Public Use
  Company Number: US-AMGEN-USASP2012013042

PATIENT
  Age: 79 Year
  Sex: Female

DRUGS (2)
  1. METHOTREXATE [Concomitant]
     Dosage: 1 MG, UNK
     Dates: start: 20090101
  2. ENBREL [Suspect]
     Indication: RHEUMATOID ARTHRITIS
     Dosage: 50 MG, QWK
     Dates: start: 20120206

REACTIONS (7)
  - SINUSITIS [None]
  - HERPES VIRUS INFECTION [None]
  - FATIGUE [None]
  - INJECTION SITE ERYTHEMA [None]
  - DYSPNOEA [None]
  - ASTHENIA [None]
  - CHEST DISCOMFORT [None]
